FAERS Safety Report 19544795 (Version 1)
Quarter: 2021Q3

REPORT INFORMATION
  Report Type: Spontaneous
  Country: HR (occurrence: HR)
  Receive Date: 20210713
  Receipt Date: 20210713
  Transmission Date: 20211014
  Serious: Yes (Other)
  Sender: FDA-Public Use
  Company Number: NVSC2021HR150022

PATIENT
  Age: 48 Year
  Sex: Female

DRUGS (3)
  1. METHOTREXATE. [Suspect]
     Active Substance: METHOTREXATE
     Dosage: UNK
     Route: 065
     Dates: start: 201805
  2. METHOTREXATE. [Suspect]
     Active Substance: METHOTREXATE
     Indication: PRODUCT USED FOR UNKNOWN INDICATION
     Dosage: 10 MG
     Route: 065
     Dates: start: 201802
  3. NEOTIGASON [Suspect]
     Active Substance: ACITRETIN
     Indication: PRODUCT USED FOR UNKNOWN INDICATION
     Dosage: 25 MG + 10 MG
     Route: 065
     Dates: start: 201705

REACTIONS (11)
  - Fatigue [Unknown]
  - Rheumatoid arthritis [Unknown]
  - Disturbance in attention [Unknown]
  - Skin disorder [Unknown]
  - Psoriatic arthropathy [Unknown]
  - Disease recurrence [Unknown]
  - Arthralgia [Unknown]
  - Arthropathy [Unknown]
  - Dyspnoea [Unknown]
  - Nausea [Unknown]
  - Alopecia [Unknown]

NARRATIVE: CASE EVENT DATE: 2018
